FAERS Safety Report 14657779 (Version 3)
Quarter: 2018Q2

REPORT INFORMATION
  Report Type: Spontaneous
  Country: JP (occurrence: JP)
  Receive Date: 20180320
  Receipt Date: 20180412
  Transmission Date: 20180711
  Serious: Yes (Hospitalization)
  Sender: FDA-Public Use
  Company Number: JP-ROCHE-2088811

PATIENT
  Age: 66 Year
  Sex: Male
  Weight: 36 kg

DRUGS (5)
  1. CALONAL [Concomitant]
     Active Substance: ACETAMINOPHEN
     Route: 048
     Dates: start: 20180111
  2. RAPIACTA [Concomitant]
     Active Substance: PERAMIVIR
  3. TAMIFLU [Suspect]
     Active Substance: OSELTAMIVIR PHOSPHATE
     Indication: INFLUENZA
     Route: 048
     Dates: start: 20180112, end: 20180115
  4. MAOTO [Concomitant]
     Active Substance: HERBALS
     Route: 048
     Dates: start: 20180112, end: 20180116
  5. TAMIFLU [Suspect]
     Active Substance: OSELTAMIVIR PHOSPHATE
     Route: 048
     Dates: start: 20180116, end: 20180116

REACTIONS (2)
  - Pneumonia [Recovered/Resolved]
  - Influenza A virus test positive [Recovered/Resolved]

NARRATIVE: CASE EVENT DATE: 20180116
